FAERS Safety Report 8178015-X (Version None)
Quarter: 2012Q1

REPORT INFORMATION
  Report Type: 
  Country: None (occurrence: None)
  Receive Date: 20120130
  Receipt Date: 20110712
  Transmission Date: 20120608
  Serious: Yes (Hospitalization)
  Sender: FDA-Public Use
  Company Number: 036972

PATIENT
  Age: 33 Year
  Sex: Male

DRUGS (6)
  1. DIVALPROEX SODIUM [Concomitant]
  2. LAMOTRIGINE [Concomitant]
  3. CLONAZEPAM [Concomitant]
  4. CARBAMAZEPINE [Concomitant]
  5. PHENYTOIN [Concomitant]
  6. LEVETIRACETAM [Suspect]

REACTIONS (1)
  - DISTURBANCE IN ATTENTION [None]
